FAERS Safety Report 6880359-6 (Version None)
Quarter: 2010Q3

REPORT INFORMATION
  Report Type: 
  Country: None (occurrence: None)
  Receive Date: 20100727
  Receipt Date: 20100719
  Transmission Date: 20110219
  Serious: Yes (Other)
  Sender: FDA-Public Use
  Company Number: FR-KINGPHARMUSA00001-K201000759

PATIENT
  Age: 80 Year
  Sex: Male

DRUGS (5)
  1. ALTACE [Suspect]
     Indication: HYPERTENSION
     Dosage: 5 MG, QD
     Route: 048
     Dates: start: 20090814, end: 20100220
  2. ISCOVER [Concomitant]
  3. DIBLOCIN PP [Concomitant]
  4. INSULIN ACTRAPHANE [Concomitant]
  5. ALLOPURINOL [Concomitant]

REACTIONS (1)
  - MYELODYSPLASTIC SYNDROME [None]
